FAERS Safety Report 16691306 (Version 1)
Quarter: 2019Q3

REPORT INFORMATION
  Report Type: Spontaneous
  Country: GB (occurrence: GB)
  Receive Date: 20190812
  Receipt Date: 20190812
  Transmission Date: 20191004
  Serious: Yes (Disabling)
  Sender: FDA-Public Use
  Company Number: GB-AUROBINDO-AUR-APL-2019-052679

PATIENT

DRUGS (4)
  1. PROPANOL [Concomitant]
     Active Substance: PROPRANOLOL HYDROCHLORIDE
     Indication: PRODUCT USED FOR UNKNOWN INDICATION
     Dosage: UNK
     Route: 065
  2. FEMODETTE [Concomitant]
     Indication: PRODUCT USED FOR UNKNOWN INDICATION
     Dosage: UNK
     Route: 065
  3. LANSOPRAZOLE. [Concomitant]
     Active Substance: LANSOPRAZOLE
     Indication: PRODUCT USED FOR UNKNOWN INDICATION
     Dosage: UNK
     Route: 065
  4. MIRTAZAPINE. [Suspect]
     Active Substance: MIRTAZAPINE
     Indication: POOR QUALITY SLEEP
     Dosage: 45 MILLIGRAM
     Route: 048
     Dates: start: 20171001, end: 20190613

REACTIONS (14)
  - Weight increased [Recovering/Resolving]
  - Paranoia [Recovered/Resolved]
  - Cognitive disorder [Recovering/Resolving]
  - Dissociation [Recovering/Resolving]
  - Amnesia [Recovering/Resolving]
  - Fatigue [Recovering/Resolving]
  - Productive cough [Not Recovered/Not Resolved]
  - Nausea [Not Recovered/Not Resolved]
  - Decreased interest [Recovering/Resolving]
  - Rhinorrhoea [Not Recovered/Not Resolved]
  - Hypersomnia [Recovering/Resolving]
  - Withdrawal syndrome [Unknown]
  - Neck pain [Recovered/Resolved]
  - Insomnia [Recovering/Resolving]

NARRATIVE: CASE EVENT DATE: 20181101
